FAERS Safety Report 7903407-0 (Version None)
Quarter: 2011Q4

REPORT INFORMATION
  Report Type: 
  Country: None (occurrence: None)
  Receive Date: 20111107
  Receipt Date: 20111024
  Transmission Date: 20120403
  Serious: Yes (Life-Threatening, Other)
  Sender: FDA-Public Use
  Company Number: 2011P1009710

PATIENT
  Age: 69 Year
  Sex: Male

DRUGS (1)
  1. AMIODARONE HCL [Suspect]
     Dosage: 200 MG;BID

REACTIONS (9)
  - FATIGUE [None]
  - PERICARDIAL EFFUSION [None]
  - HYPOTHYROIDISM [None]
  - CARDIAC TAMPONADE [None]
  - DYSPNOEA EXERTIONAL [None]
  - JUGULAR VEIN DISTENSION [None]
  - CARDIOMEGALY [None]
  - BRADYCARDIA [None]
  - BLOOD PRESSURE DECREASED [None]
